FAERS Safety Report 4341726-8 (Version None)
Quarter: 2004Q2

REPORT INFORMATION
  Report Type: 
  Country: None (occurrence: None)
  Receive Date: 20040420
  Receipt Date: 20031212
  Transmission Date: 20050107
  Serious: Yes (Death, Life-Threatening)
  Sender: FDA-Public Use
  Company Number: JP-MERCK-0312USA02062

PATIENT
  Age: 73 Year
  Sex: Male

DRUGS (8)
  1. TAXOTERE [Suspect]
     Indication: SALIVARY GLAND CANCER
     Route: 042
     Dates: start: 20031120, end: 20031127
  2. LANDEL [Concomitant]
     Route: 048
     Dates: start: 20030909, end: 20040210
  3. RENIVACE [Concomitant]
     Route: 048
     Dates: start: 20031019, end: 20031025
  4. PEPCID [Suspect]
     Indication: DUODENAL ULCER
     Route: 042
     Dates: start: 20031208, end: 20031212
  5. KYTRIL [Concomitant]
     Route: 042
     Dates: start: 20031120, end: 20031127
  6. OMEPRAZOLE [Suspect]
     Indication: DUODENAL ULCER
     Route: 042
     Dates: start: 20031129, end: 20031205
  7. GASTROZEPIN [Suspect]
     Indication: DUODENAL ULCER
     Route: 042
     Dates: start: 20031129, end: 20031207
  8. ALLOID G [Concomitant]
     Route: 065

REACTIONS (5)
  - DISSEMINATED INTRAVASCULAR COAGULATION [None]
  - DUODENAL ULCER [None]
  - GENERAL PHYSICAL HEALTH DETERIORATION [None]
  - METASTASIS [None]
  - THROMBOCYTOPENIA [None]
